FAERS Safety Report 9463157 (Version 1)
Quarter: 2013Q3

REPORT INFORMATION
  Report Type: Spontaneous
  Country: FR (occurrence: FR)
  Receive Date: 20130817
  Receipt Date: 20130817
  Transmission Date: 20140515
  Serious: Yes (Other)
  Sender: FDA-Public Use
  Company Number: FR-UCBSA-094918

PATIENT
  Age: 76 Year
  Sex: Female

DRUGS (14)
  1. KEPPRA [Suspect]
     Route: 048
     Dates: start: 20130626, end: 20130719
  2. VANCOMYCINE MYLAN [Concomitant]
     Route: 042
     Dates: start: 20130711, end: 20130714
  3. ATACAND [Concomitant]
  4. BACLOFENE [Concomitant]
  5. CETORNAN [Concomitant]
  6. FORLAX [Concomitant]
  7. INEXIUM [Concomitant]
  8. LASILIX [Concomitant]
  9. SPECIAFOLDINE [Concomitant]
  10. STILNOX [Concomitant]
  11. TARDYFERON [Concomitant]
  12. TIENAM [Concomitant]
     Dates: start: 20130711
  13. TRAMADOL HYDROCHLORIDE [Concomitant]
  14. CALCIPARINE [Concomitant]

REACTIONS (3)
  - Rash macular [Recovered/Resolved]
  - Bacteraemia [Unknown]
  - Endocarditis [Unknown]
